FAERS Safety Report 18539724 (Version 1)
Quarter: 2020Q4

REPORT INFORMATION
  Report Type: Spontaneous
  Country: US (occurrence: US)
  Receive Date: 20201124
  Receipt Date: 20201124
  Transmission Date: 20210114
  Serious: No
  Sender: FDA-Public Use
  Company Number: US-JNJFOC-20201115989

PATIENT
  Age: 1 Decade
  Sex: Male
  Weight: 31.78 kg

DRUGS (1)
  1. MENS ROGAINE EXTRA STRENGTH [Suspect]
     Active Substance: MINOXIDIL
     Indication: ALOPECIA
     Dosage: DOSE: A SQUIRT ONCE DAILY?LAST ADMINISTRATION DATE: 05-NOV-2020
     Route: 061

REACTIONS (2)
  - Off label use [Unknown]
  - Product administered to patient of inappropriate age [Unknown]
